FAERS Safety Report 24159056 (Version 1)
Quarter: 2024Q3

REPORT INFORMATION
  Report Type: Report from Study
  Country: US (occurrence: US)
  Receive Date: 20240731
  Receipt Date: 20240731
  Transmission Date: 20241016
  Serious: No
  Sender: AURINIA PHARMACEUTICALS
  Company Number: US-AURINIA PHARMACEUTICALS INC.-AUR-005908

PATIENT
  Age: 20 Year
  Sex: Female
  Weight: 85.78 kg

DRUGS (10)
  1. LUPKYNIS [Suspect]
     Active Substance: VOCLOSPORIN
     Indication: Lupus nephritis
     Dosage: 7.9 MILLIGRAM, BID
     Route: 048
     Dates: start: 20230118
  2. AMLODIPINE BESYLATE [Concomitant]
     Active Substance: AMLODIPINE BESYLATE
     Indication: Nephrotic syndrome
     Dosage: 5 MILLIGRAM, QD
     Route: 048
     Dates: start: 20200110
  3. GARDASIL 9 [Concomitant]
     Active Substance: HUMAN PAPILLOMAVIRUS TYPE 11 L1 CAPSID PROTEIN ANTIGEN\HUMAN PAPILLOMAVIRUS TYPE 16 L1 CAPSID PROTEI
     Indication: Vulvar erosion
     Dosage: 0.5 MILLILITER, SINGLE
     Route: 030
     Dates: start: 20230227, end: 20230227
  4. HYDROXYCHLOROQUINE SULFATE [Concomitant]
     Active Substance: HYDROXYCHLOROQUINE SULFATE
     Indication: Glomerulonephritis
     Dosage: 200 MILLIGRAM, QD
     Route: 048
     Dates: start: 20160201
  5. HYDROXYCHLOROQUINE SULFATE [Concomitant]
     Active Substance: HYDROXYCHLOROQUINE SULFATE
     Indication: Nephrotic syndrome
  6. MEDROXYPROGESTERONE ACETATE [Concomitant]
     Active Substance: MEDROXYPROGESTERONE ACETATE
     Indication: Contraception
     Dosage: 150 MILLIGRAM PER MILLILITRE, EVERY 12 WEEKS
     Route: 030
     Dates: start: 20180824
  7. METRONIDAZOLE [Concomitant]
     Active Substance: METRONIDAZOLE
     Indication: Trichomoniasis
     Dosage: 500 MILLIGRAM, BID
     Route: 048
     Dates: start: 20240329
  8. MYCOPHENOLATE MOFETIL [Concomitant]
     Active Substance: MYCOPHENOLATE MOFETIL
     Indication: Chronic kidney disease
     Dosage: 1000 MILLIGRAM, BID
     Route: 048
     Dates: start: 20170424
  9. MYCOPHENOLATE MOFETIL [Concomitant]
     Active Substance: MYCOPHENOLATE MOFETIL
     Indication: Glomerulonephritis
  10. PREDNISONE [Concomitant]
     Active Substance: PREDNISONE
     Indication: Lupus nephritis
     Dosage: 20 MILLIGRAM, QD
     Route: 048
     Dates: start: 20211001

REACTIONS (3)
  - Haematuria [Recovering/Resolving]
  - Proteinuria [Recovering/Resolving]
  - Sexually transmitted disease [Recovered/Resolved]

NARRATIVE: CASE EVENT DATE: 20240301
